FAERS Safety Report 9316817 (Version 1)
Quarter: 2013Q2

REPORT INFORMATION
  Report Type: Spontaneous
  Country: US (occurrence: None)
  Receive Date: 20130528
  Receipt Date: 20130528
  Transmission Date: 20140414
  Serious: Yes (Death, Other)
  Sender: FDA-Public Use
  Company Number: None

PATIENT
  Age: 55 Year
  Sex: Male
  Weight: 88.45 kg

DRUGS (1)
  1. XARELTO 20 MG JANSSEN [Suspect]
     Indication: ATRIAL FIBRILLATION
     Dosage: 20MG TAKE IN MORNING PO
     Route: 048
     Dates: start: 20130314, end: 20130314

REACTIONS (1)
  - Fall [None]
